FAERS Safety Report 17867326 (Version 2)
Quarter: 2020Q4

REPORT INFORMATION
  Report Type: Spontaneous
  Country: US (occurrence: US)
  Receive Date: 20200605
  Receipt Date: 20201208
  Transmission Date: 20210113
  Serious: Yes (Other)
  Sender: FDA-Public Use
  Company Number: US-INDIVIOR US-INDV-125113-2020

PATIENT
  Sex: Female
  Weight: 9.07 kg

DRUGS (3)
  1. SUBUTEX [Suspect]
     Active Substance: BUPRENORPHINE HYDROCHLORIDE
     Indication: DRUG DEPENDENCE
     Dosage: 12 MG, UNK
     Route: 064
     Dates: start: 2018, end: 20181214
  2. VITAMINS                           /00067501/ [Concomitant]
     Active Substance: VITAMINS
     Indication: IRON DEFICIENCY
     Dosage: UNK
     Route: 064
  3. SUBOXONE [Suspect]
     Active Substance: BUPRENORPHINE HYDROCHLORIDE\NALOXONE HYDROCHLORIDE
     Indication: DRUG DEPENDENCE
     Dosage: UNK (HALF FILM AND SOMETIMES HALF IN AGAIN)
     Route: 064
     Dates: start: 201009

REACTIONS (6)
  - Developmental delay [Not Recovered/Not Resolved]
  - Drug withdrawal syndrome neonatal [Recovered/Resolved]
  - Tongue movement disturbance [Recovering/Resolving]
  - Foetal exposure during pregnancy [Recovered/Resolved]
  - Underweight [Not Recovered/Not Resolved]
  - Diarrhoea neonatal [Recovered/Resolved]

NARRATIVE: CASE EVENT DATE: 201803
